FAERS Safety Report 5595011-7 (Version None)
Quarter: 2008Q1

REPORT INFORMATION
  Report Type: 
  Country: None (occurrence: None)
  Receive Date: 20080117
  Receipt Date: 20080110
  Transmission Date: 20080703
  Serious: Yes (Other)
  Sender: FDA-Public Use
  Company Number: US-ABBOTT-08P-163-0432677-00

PATIENT
  Sex: Male

DRUGS (10)
  1. HUMIRA [Suspect]
     Indication: CROHN'S DISEASE
     Route: 058
     Dates: start: 20070801, end: 20071107
  2. HUMIRA [Suspect]
     Route: 058
     Dates: start: 20071218, end: 20080110
  3. TYLOX [Suspect]
     Indication: DRUG USE FOR UNKNOWN INDICATION
     Route: 048
     Dates: start: 20071010, end: 20071128
  4. TYLOX [Suspect]
     Route: 048
     Dates: end: 20071227
  5. BALSALAZIDE DISODIUM [Concomitant]
     Indication: DRUG USE FOR UNKNOWN INDICATION
     Route: 048
     Dates: end: 20071128
  6. BALSALAZIDE DISODIUM [Concomitant]
  7. STATINS [Concomitant]
     Indication: DRUG USE FOR UNKNOWN INDICATION
     Route: 048
     Dates: end: 20071128
  8. STATINS [Concomitant]
  9. PREDNISONE TAB [Concomitant]
     Indication: CROHN'S DISEASE
     Route: 048
     Dates: end: 20071128
  10. PREDNISONE TAB [Concomitant]

REACTIONS (10)
  - APPENDICITIS [None]
  - FALL [None]
  - HEADACHE [None]
  - INJECTION SITE ERYTHEMA [None]
  - INJECTION SITE PRURITUS [None]
  - INSOMNIA [None]
  - NASAL CONGESTION [None]
  - PRURITUS [None]
  - RASH [None]
  - UPPER LIMB FRACTURE [None]
